FAERS Safety Report 14260662 (Version 1)
Quarter: 2017Q4

REPORT INFORMATION
  Report Type: Spontaneous
  Country: US (occurrence: US)
  Receive Date: 20171207
  Receipt Date: 20171207
  Transmission Date: 20180321
  Serious: No
  Sender: FDA-Public Use
  Company Number: US-PFIZER INC-2017524708

PATIENT
  Age: 46 Year
  Sex: Female

DRUGS (1)
  1. ATROPINE SULFATE/DIPHENOXYLATE HYDROCHLORIDE [Suspect]
     Active Substance: ATROPINE SULFATE\DIPHENOXYLATE HYDROCHLORIDE
     Indication: DIARRHOEA
     Dosage: [ATROPINE SULFATE 0.025MG]/[DIPHENOXYLATE HCL 2.5MG]TAKE ONE TABLET BY MOUTH EVERY 4-6 HOURS AS NEED
     Route: 048
     Dates: start: 201708, end: 20171204

REACTIONS (2)
  - Drug ineffective [Unknown]
  - Product use issue [Recovered/Resolved]

NARRATIVE: CASE EVENT DATE: 201708
